FAERS Safety Report 12217154 (Version 2)
Quarter: 2016Q2

REPORT INFORMATION
  Report Type: Spontaneous
  Country: CH (occurrence: CH)
  Receive Date: 20160329
  Receipt Date: 20160421
  Transmission Date: 20160815
  Serious: Yes (Hospitalization)
  Sender: FDA-Public Use
  Company Number: CH-TEVA-646605ISR

PATIENT
  Age: 43 Year
  Sex: Female

DRUGS (3)
  1. CITALOPRAM [Suspect]
     Active Substance: CITALOPRAM HYDROBROMIDE
     Indication: DEPRESSION
     Dosage: THERAPY STARTED 6 MONTHS BEFORE LICHEN RUBER PLANUS OF NAILS WAS DIAGNOSED
     Route: 065
  2. CURANEL [Concomitant]
     Dosage: AMOROLFINE NAIL LACQUER
     Route: 065
  3. ITRACONAZOL [Concomitant]
     Active Substance: ITRACONAZOLE
     Indication: ANTIFUNGAL TREATMENT
     Dosage: STOPPED, DATE UNKNOWN
     Route: 065

REACTIONS (1)
  - Lichen planus [Unknown]
